FAERS Safety Report 9236148 (Version 1)
Quarter: 2013Q2

REPORT INFORMATION
  Report Type: Spontaneous
  Country: US (occurrence: None)
  Receive Date: 20130416
  Receipt Date: 20130416
  Transmission Date: 20140414
  Serious: No
  Sender: FDA-Public Use
  Company Number: None

PATIENT
  Age: 58 Year
  Sex: Female
  Weight: 83.92 kg

DRUGS (1)
  1. RESTASIS [Suspect]
     Dosage: 1 DROP 2X A DAY EYES
     Dates: start: 20130201, end: 20130315

REACTIONS (2)
  - Throat irritation [None]
  - Ear infection [None]
